FAERS Safety Report 13805825 (Version 3)
Quarter: 2017Q4

REPORT INFORMATION
  Report Type: Spontaneous
  Country: JP (occurrence: JP)
  Receive Date: 20170728
  Receipt Date: 20171127
  Transmission Date: 20180320
  Serious: Yes (Other)
  Sender: FDA-Public Use
  Company Number: JP-PFIZER INC-2017322728

PATIENT
  Age: 51 Year
  Sex: Female
  Weight: 62 kg

DRUGS (10)
  1. GASMOTIN [Suspect]
     Active Substance: MOSAPRIDE CITRATE
     Indication: BREAST CANCER
     Dosage: 5 MG, 3X/DAY
     Route: 048
     Dates: start: 20170510, end: 20170728
  2. EPIRUBICIN HCL 10MG/5ML HOSPIRA [Suspect]
     Active Substance: EPIRUBICIN HYDROCHLORIDE
     Indication: CHEMOTHERAPY
     Dosage: 153 MG, 1X/DAY
     Route: 041
     Dates: start: 20170510, end: 20170721
  3. EPIRUBICIN HCL 10MG/5ML HOSPIRA [Suspect]
     Active Substance: EPIRUBICIN HYDROCHLORIDE
     Indication: BREAST CANCER
  4. ENDOXAN [Suspect]
     Active Substance: CYCLOPHOSPHAMIDE
     Indication: BREAST CANCER
     Dosage: 765 MG, 1X/DAY
     Route: 041
     Dates: start: 20170510, end: 20170721
  5. FLUOROURACIL 5 FU [Suspect]
     Active Substance: FLUOROURACIL
     Indication: BREAST CANCER
     Dosage: 765 MG, 1X/DAY
     Route: 041
     Dates: start: 20170510, end: 20170721
  6. ALOXI [Suspect]
     Active Substance: PALONOSETRON HYDROCHLORIDE
     Indication: BREAST CANCER
     Dosage: 0.75 MG, 1X/DAY
     Route: 041
     Dates: start: 20170510, end: 20170721
  7. PACLITAXEL. [Suspect]
     Active Substance: PACLITAXEL
     Dosage: UNK, WEEKLY (FOR 12 WEEKS)
  8. PROEMEND [Suspect]
     Active Substance: FOSAPREPITANT
     Indication: BREAST CANCER
     Dosage: 150 MG, 1X/DAY
     Route: 041
     Dates: start: 20170510, end: 20170721
  9. DEXART [Suspect]
     Active Substance: DEXAMETHASONE SODIUM PHOSPHATE
     Indication: BREAST CANCER
     Dosage: 9.9 MG, 1X/DAY
     Route: 041
     Dates: start: 20170510, end: 20170721
  10. TAKEPRON [Suspect]
     Active Substance: LANSOPRAZOLE
     Indication: BREAST CANCER
     Dosage: 15 MG, 1X/DAY
     Route: 048
     Dates: start: 20170511, end: 20170725

REACTIONS (1)
  - Electrocardiogram QT prolonged [Recovered/Resolved]

NARRATIVE: CASE EVENT DATE: 20170722
